FAERS Safety Report 20446851 (Version 2)
Quarter: 2022Q1

REPORT INFORMATION
  Report Type: Report from Study
  Country: GB (occurrence: GB)
  Receive Date: 20220208
  Receipt Date: 20220214
  Transmission Date: 20220423
  Serious: Yes (Hospitalization)
  Sender: FDA-Public Use
  Company Number: GB-SUN PHARMACEUTICAL INDUSTRIES LTD-2022R1-326412

PATIENT
  Age: 74 Year
  Sex: Male

DRUGS (2)
  1. ABIRATERONE [Suspect]
     Active Substance: ABIRATERONE
     Indication: Hormone-refractory prostate cancer
     Dosage: 500 MILLIGRAM, DAILY
     Route: 048
     Dates: start: 20210202, end: 20220129
  2. TILDRAKIZUMAB [Suspect]
     Active Substance: TILDRAKIZUMAB
     Indication: Hormone-refractory prostate cancer
     Dosage: 600 MILLIGRAM PER MILLILITRE/ EVERY 28 DAYS
     Route: 042
     Dates: start: 20211021, end: 20220127

REACTIONS (1)
  - Pain [Recovered/Resolved]

NARRATIVE: CASE EVENT DATE: 20220129
